FAERS Safety Report 15000709 (Version 1)
Quarter: 2018Q2

REPORT INFORMATION
  Report Type: Spontaneous
  Country: CA (occurrence: CA)
  Receive Date: 20180612
  Receipt Date: 20180612
  Transmission Date: 20180711
  Serious: Yes (Hospitalization)
  Sender: FDA-Public Use
  Company Number: CA-TEVA-2018-CA-902743

PATIENT
  Age: 54 Year
  Sex: Female

DRUGS (2)
  1. BENADRYL [Concomitant]
     Active Substance: DIPHENHYDRAMINE HYDROCHLORIDE
  2. TEVA-CEPHALEXIN [Suspect]
     Active Substance: CEPHALEXIN
     Route: 048

REACTIONS (10)
  - Anxiety [Unknown]
  - Nervousness [Unknown]
  - Hypoaesthesia [Unknown]
  - Bradyphrenia [Unknown]
  - Dyspnoea [Unknown]
  - Panic reaction [Unknown]
  - Mental impairment [Unknown]
  - Feeling abnormal [Unknown]
  - Paraesthesia [Unknown]
  - Palpitations [Unknown]
